FAERS Safety Report 9462267 (Version 1)
Quarter: 2013Q3

REPORT INFORMATION
  Report Type: Spontaneous
  Country: FR (occurrence: FR)
  Receive Date: 20130816
  Receipt Date: 20130816
  Transmission Date: 20140515
  Serious: Yes (Hospitalization)
  Sender: FDA-Public Use
  Company Number: FR-GLAXOSMITHKLINE-B0915399A

PATIENT
  Age: 3 Year
  Sex: Male
  Weight: 12.6 kg

DRUGS (6)
  1. LAMICTAL [Suspect]
     Indication: CONVULSION
     Route: 048
     Dates: start: 201212, end: 20130718
  2. SODIUM VALPROATE [Concomitant]
     Indication: ENCEPHALOPATHY
     Dosage: 350MG PER DAY
     Route: 048
     Dates: start: 201212
  3. LAROXYL [Concomitant]
     Indication: SLEEP DISORDER
     Route: 048
     Dates: start: 20130711, end: 20130715
  4. ALVITYL [Concomitant]
     Route: 048
     Dates: start: 20130711, end: 20130715
  5. CIRCADIN [Concomitant]
     Dosage: 2MG PER DAY
     Route: 065
     Dates: start: 201306
  6. ATARAX [Concomitant]
     Route: 065

REACTIONS (2)
  - Generalised erythema [Recovering/Resolving]
  - Cheilitis [Recovering/Resolving]
